FAERS Safety Report 19257077 (Version 2)
Quarter: 2021Q2

REPORT INFORMATION
  Report Type: Report from Study
  Country: None (occurrence: AU)
  Receive Date: 20210513
  Receipt Date: 20210605
  Transmission Date: 20210717
  Serious: Yes (Hospitalization)
  Sender: FDA-Public Use
  Company Number: AU-ABBVIE-21P-008-3894155-00

PATIENT
  Age: 9 Year
  Sex: Male
  Weight: 46.5 kg

DRUGS (41)
  1. PREDNISONE. [Suspect]
     Active Substance: PREDNISONE
     Route: 048
     Dates: start: 20210313, end: 20210315
  2. CYTARABINE. [Suspect]
     Active Substance: CYTARABINE
     Indication: RECURRENT CANCER
     Route: 042
     Dates: start: 20210406, end: 20210409
  3. MERCAPTOPURINE. [Suspect]
     Active Substance: MERCAPTOPURINE
     Indication: REFRACTORY CANCER
     Route: 048
     Dates: start: 20210406, end: 20210419
  4. ONDANSETRON [Concomitant]
     Active Substance: ONDANSETRON
     Indication: VOMITING
     Dosage: FREQUENCY: TID PRN
     Route: 048
     Dates: start: 20210312
  5. LACTULOSE. [Concomitant]
     Active Substance: LACTULOSE
     Indication: CONSTIPATION
     Route: 048
     Dates: start: 20210305
  6. METHOTREXATE. [Suspect]
     Active Substance: METHOTREXATE
     Indication: RECURRENT CANCER
  7. PARACETAMOL [Concomitant]
     Active Substance: ACETAMINOPHEN
     Indication: PAIN IN JAW
     Dosage: UNIT DOSE: 750?790 MG
     Route: 048
     Dates: start: 20210210
  8. OXYCODONE [Concomitant]
     Active Substance: OXYCODONE
     Indication: PAIN IN JAW
     Route: 048
     Dates: start: 20210210
  9. VENETOCLAX. [Suspect]
     Active Substance: VENETOCLAX
     Indication: REFRACTORY CANCER
     Route: 048
     Dates: start: 20210302, end: 20210302
  10. VENETOCLAX. [Suspect]
     Active Substance: VENETOCLAX
     Route: 050
     Dates: start: 20210505, end: 20210512
  11. PREDNISONE. [Suspect]
     Active Substance: PREDNISONE
     Indication: REFRACTORY CANCER
     Route: 048
     Dates: start: 20210309, end: 20210312
  12. PEGASPARAGINASE [Suspect]
     Active Substance: PEGASPARGASE
     Indication: REFRACTORY CANCER
  13. PARACETAMOL [Concomitant]
     Active Substance: ACETAMINOPHEN
     Indication: PAIN IN EXTREMITY
  14. SODIUM BICARBONATE MOUTHWASH [Concomitant]
     Indication: DENTAL DISORDER PROPHYLAXIS
     Route: 061
     Dates: start: 20210302
  15. OXYCODONE [Concomitant]
     Active Substance: OXYCODONE
     Indication: PAIN IN EXTREMITY
  16. VENETOCLAX. [Suspect]
     Active Substance: VENETOCLAX
     Route: 050
     Dates: start: 20210409, end: 20210504
  17. VINCRISTINE [Suspect]
     Active Substance: VINCRISTINE
     Indication: RECURRENT CANCER
     Route: 042
     Dates: start: 20210305, end: 20210305
  18. CYTARABINE. [Suspect]
     Active Substance: CYTARABINE
     Route: 042
     Dates: start: 20210413, end: 20210416
  19. ONDANSETRON [Concomitant]
     Active Substance: ONDANSETRON
     Indication: PROPHYLAXIS OF NAUSEA AND VOMITING
     Route: 042
     Dates: start: 20210205
  20. CYTARABINE. [Suspect]
     Active Substance: CYTARABINE
     Indication: REFRACTORY CANCER
     Route: 042
     Dates: start: 20210317, end: 20210320
  21. METHOTREXATE. [Suspect]
     Active Substance: METHOTREXATE
     Indication: REFRACTORY CANCER
     Dosage: DAY 33 CHEMO
     Route: 037
     Dates: start: 20210309, end: 20210309
  22. PARACETAMOL [Concomitant]
     Active Substance: ACETAMINOPHEN
     Indication: BACK PAIN
  23. NYSTATIN. [Concomitant]
     Active Substance: NYSTATIN
     Indication: CHEMOTHERAPY SIDE EFFECT PROPHYLAXIS
  24. VINCRISTINE [Suspect]
     Active Substance: VINCRISTINE
     Indication: REFRACTORY CANCER
  25. CYTARABINE. [Suspect]
     Active Substance: CYTARABINE
     Route: 042
     Dates: start: 20210504
  26. MERCAPTOPURINE. [Suspect]
     Active Substance: MERCAPTOPURINE
     Indication: RECURRENT CANCER
     Route: 048
     Dates: start: 20210317, end: 20210321
  27. CYCLOPHOSPHAMIDE. [Suspect]
     Active Substance: CYCLOPHOSPHAMIDE
     Indication: REFRACTORY CANCER
     Route: 042
     Dates: start: 20210413, end: 20210413
  28. CYCLOPHOSPHAMIDE. [Suspect]
     Active Substance: CYCLOPHOSPHAMIDE
     Indication: RECURRENT CANCER
     Route: 042
     Dates: start: 20210511, end: 20210511
  29. TAZOCIN [Concomitant]
     Active Substance: PIPERACILLIN SODIUM\TAZOBACTAM SODIUM
     Indication: INFECTION
     Route: 042
     Dates: start: 20210309, end: 20210310
  30. TAZOCIN [Concomitant]
     Active Substance: PIPERACILLIN SODIUM\TAZOBACTAM SODIUM
     Indication: FEBRILE NEUTROPENIA
     Route: 042
     Dates: start: 20210430, end: 20210430
  31. TAZOCIN [Concomitant]
     Active Substance: PIPERACILLIN SODIUM\TAZOBACTAM SODIUM
     Indication: PYREXIA
     Route: 042
     Dates: start: 20210506
  32. VENETOCLAX. [Suspect]
     Active Substance: VENETOCLAX
     Indication: RECURRENT CANCER
     Route: 048
     Dates: start: 20210303, end: 20210408
  33. TAZOCIN [Concomitant]
     Active Substance: PIPERACILLIN SODIUM\TAZOBACTAM SODIUM
     Indication: DEVICE RELATED INFECTION
     Route: 042
     Dates: start: 20210323, end: 20210323
  34. PREDNISONE. [Suspect]
     Active Substance: PREDNISONE
     Indication: RECURRENT CANCER
     Route: 048
     Dates: start: 20210306, end: 20210309
  35. PEGASPARAGINASE [Suspect]
     Active Substance: PEGASPARGASE
     Indication: RECURRENT CANCER
     Dosage: 2500 IU/M2
     Route: 042
     Dates: start: 20210302, end: 20210302
  36. MERCAPTOPURINE. [Suspect]
     Active Substance: MERCAPTOPURINE
     Route: 048
     Dates: start: 20210504
  37. PARACETAMOL [Concomitant]
     Active Substance: ACETAMINOPHEN
     Indication: PYREXIA
  38. OSMOLAX [Concomitant]
     Indication: CONSTIPATION
     Route: 048
     Dates: start: 20210221
  39. NYSTATIN. [Concomitant]
     Active Substance: NYSTATIN
     Indication: DENTAL DISORDER PROPHYLAXIS
     Route: 048
     Dates: start: 20210302
  40. OXYCODONE [Concomitant]
     Active Substance: OXYCODONE
     Indication: BACK PAIN
  41. BACTRIM [Concomitant]
     Active Substance: SULFAMETHOXAZOLE\TRIMETHOPRIM
     Indication: ANTIFUNGAL PROPHYLAXIS
     Dosage: UNIT DOSE:  800/160 MG?FREQUENCY: BD ON MON, WED, FRI
     Route: 048
     Dates: start: 20210312

REACTIONS (1)
  - Decreased appetite [Recovered/Resolved]

NARRATIVE: CASE EVENT DATE: 20210506
